FAERS Safety Report 4482628-6 (Version None)
Quarter: 2004Q3

REPORT INFORMATION
  Report Type: 
  Country: None (occurrence: None)
  Receive Date: 20040921
  Receipt Date: 20040609
  Transmission Date: 20050211
  Serious: Yes (Hospitalization, Other)
  Sender: FDA-Public Use
  Company Number: 163-20785-04060402

PATIENT
  Age: 55 Year
  Sex: Male
  Weight: 58.0604 kg

DRUGS (8)
  1. THALOMID [Suspect]
     Indication: MALIGNANT MELANOMA STAGE IV
     Dosage: 100 MG, DAILY, ORAL
     Route: 048
     Dates: start: 20040521, end: 20040529
  2. TEMODAR [Suspect]
     Indication: MALIGNANT MELANOMA STAGE IV
     Dosage: 375 MG, DAILY, ORAL
     Route: 048
     Dates: start: 20040521, end: 20040529
  3. DECADRON [Concomitant]
  4. COMPAZINE [Concomitant]
  5. PRILOSEC [Concomitant]
  6. OXYCODONE (OXYCODONE) [Concomitant]
  7. COLACE (DOCUSATE SODIUM) [Concomitant]
  8. SENNA (SENNA) [Concomitant]

REACTIONS (1)
  - DISEASE PROGRESSION [None]
